FAERS Safety Report 10974524 (Version 1)
Quarter: 2015Q1

REPORT INFORMATION
  Report Type: Spontaneous
  Country: US (occurrence: None)
  Receive Date: 20150226
  Receipt Date: 20150226
  Transmission Date: 20150721
  Serious: No
  Sender: FDA-Public Use
  Company Number: TPA2010A00132

PATIENT
  Age: 48 Year
  Sex: Male
  Weight: 86.18 kg

DRUGS (2)
  1. UNSPECIFIED MEDICATIONS (ALL OTHER THERAPEUTIC PRODUCTS) [Concomitant]
     Active Substance: UNSPECIFIED INGREDIENT
  2. ULORIC [Suspect]
     Active Substance: FEBUXOSTAT
     Indication: GOUT
     Dosage: 1 IN 1 D
     Route: 048
     Dates: start: 200912

REACTIONS (1)
  - Abdominal discomfort [None]
